FAERS Safety Report 4863633-4 (Version None)
Quarter: 2005Q4

REPORT INFORMATION
  Report Type: 
  Country: None (occurrence: None)
  Receive Date: 20051222
  Receipt Date: 20050912
  Transmission Date: 20060501
  Serious: No
  Sender: FDA-Public Use
  Company Number: US-GLAXOSMITHKLINE-A0573861A

PATIENT
  Age: 46 Year
  Sex: Male

DRUGS (3)
  1. FLOVENT [Suspect]
     Indication: ASTHMA
     Dosage: 2PUFF TWICE PER DAY
     Route: 055
  2. ZYRTEC [Concomitant]
  3. NASONEX [Concomitant]

REACTIONS (2)
  - DYSPHONIA [None]
  - INFLUENZA LIKE ILLNESS [None]
